FAERS Safety Report 10482677 (Version 1)
Quarter: 2014Q3

REPORT INFORMATION
  Report Type: Spontaneous
  Country: AR (occurrence: AR)
  Receive Date: 20140929
  Receipt Date: 20140929
  Transmission Date: 20150326
  Serious: Yes (Other)
  Sender: FDA-Public Use
  Company Number: PHHY2014AR127149

PATIENT
  Age: 28 Year
  Sex: Male

DRUGS (1)
  1. TEGRETOL [Suspect]
     Active Substance: CARBAMAZEPINE
     Indication: THROMBOSIS
     Dosage: 400 UNK, TID
     Route: 048
     Dates: start: 2012

REACTIONS (1)
  - Convulsion [Recovering/Resolving]

NARRATIVE: CASE EVENT DATE: 201302
